FAERS Safety Report 14528854 (Version 5)
Quarter: 2018Q2

REPORT INFORMATION
  Report Type: Spontaneous
  Country: SK (occurrence: SK)
  Receive Date: 20180214
  Receipt Date: 20180614
  Transmission Date: 20180711
  Serious: Yes (Death, Hospitalization, Other)
  Sender: FDA-Public Use
  Company Number: SK-BAUSCH-BL-2018-004090

PATIENT
  Age: 11 Year
  Sex: Male

DRUGS (8)
  1. LINEZOLID. [Suspect]
     Active Substance: LINEZOLID
     Indication: WOUND DEHISCENCE
     Route: 065
  2. ACYCLOVIR. [Suspect]
     Active Substance: ACYCLOVIR
     Indication: PLEOCYTOSIS
     Route: 065
  3. MEROPENEM. [Suspect]
     Active Substance: MEROPENEM
     Indication: WOUND DEHISCENCE
     Route: 065
  4. VANCOMYCINE [Suspect]
     Active Substance: VANCOMYCIN
     Indication: BRAIN ABSCESS
     Dosage: 1 MONTH 4 DAYS 12 HOURS
     Route: 065
  5. ACICLOVIR [Concomitant]
     Active Substance: ACYCLOVIR
     Indication: PRODUCT USED FOR UNKNOWN INDICATION
  6. CEFOTAXIME [Suspect]
     Active Substance: CEFOTAXIME SODIUM
     Indication: PLEOCYTOSIS
  7. CEFOTAXIME [Suspect]
     Active Substance: CEFOTAXIME SODIUM
     Indication: BRAIN ABSCESS
     Dosage: DURATION 1 MONTH 4 DAYS 12 HOURS
     Route: 065
  8. METRONIDAZOLE. [Suspect]
     Active Substance: METRONIDAZOLE
     Indication: BRAIN ABSCESS
     Dosage: DURATION 1 MONTH 4 DAYS 12 HOURS
     Route: 065

REACTIONS (5)
  - Pulmonary embolism [Not Recovered/Not Resolved]
  - Metastases to meninges [Not Recovered/Not Resolved]
  - Cardiac failure [Fatal]
  - CNS ventriculitis [Not Recovered/Not Resolved]
  - Wound dehiscence [Unknown]
